FAERS Safety Report 20935390 (Version 2)
Quarter: 2023Q2

REPORT INFORMATION
  Report Type: Spontaneous
  Country: JP (occurrence: JP)
  Receive Date: 20220609
  Receipt Date: 20230623
  Transmission Date: 20230722
  Serious: Yes (Hospitalization, Other)
  Sender: FDA-Public Use
  Company Number: JP-MSD-M2022-21448

PATIENT
  Age: 87 Year
  Sex: Male

DRUGS (2)
  1. KEYTRUDA [Suspect]
     Active Substance: PEMBROLIZUMAB
     Indication: Colon cancer
     Dosage: 200 MILLIGRAM, Q3W
     Route: 041
     Dates: start: 201910, end: 202010
  2. KEYTRUDA [Suspect]
     Active Substance: PEMBROLIZUMAB
     Dosage: 200 MILLIGRAM, Q3W
     Route: 041
     Dates: start: 202108, end: 202203

REACTIONS (6)
  - Pneumonia aspiration [Unknown]
  - Interstitial lung disease [Recovering/Resolving]
  - KL-6 increased [Unknown]
  - Surfactant protein increased [Unknown]
  - Oxygen saturation decreased [Unknown]
  - Lung opacity [Unknown]

NARRATIVE: CASE EVENT DATE: 20220421
